FAERS Safety Report 7315542-9 (Version None)
Quarter: 2011Q1

REPORT INFORMATION
  Report Type: 
  Country: None (occurrence: None)
  Receive Date: 20110218
  Receipt Date: 20110218
  Transmission Date: 20110831
  Serious: Yes (Hospitalization)
  Sender: FDA-Public Use
  Company Number: None

PATIENT
  Age: 62 Year
  Sex: Male
  Weight: 99.8 kg

DRUGS (9)
  1. VIT D [Concomitant]
  2. VALIUM [Concomitant]
  3. M.V.I. [Concomitant]
  4. VIT C [Concomitant]
  5. DILAUDID [Concomitant]
  6. NAPROXEN [Suspect]
     Indication: MUSCULOSKELETAL PAIN
     Dosage: 825MG Q12HR PO CHRONIC
     Route: 048
  7. ECHINACEA [Concomitant]
  8. OPANA [Concomitant]
  9. FISH OIL [Concomitant]

REACTIONS (6)
  - GASTRIC ULCER [None]
  - MELAENA [None]
  - HAEMODYNAMIC INSTABILITY [None]
  - LOSS OF CONSCIOUSNESS [None]
  - TACHYCARDIA [None]
  - GASTRITIS EROSIVE [None]
